FAERS Safety Report 9915030 (Version 1)
Quarter: 2014Q1

REPORT INFORMATION
  Report Type: Spontaneous
  Country: US (occurrence: US)
  Receive Date: 20140220
  Receipt Date: 20140220
  Transmission Date: 20141002
  Serious: Yes (Hospitalization)
  Sender: FDA-Public Use
  Company Number: PHEH2014US003361

PATIENT
  Age: 15 Year
  Sex: Male

DRUGS (3)
  1. CLOZARIL [Suspect]
     Indication: SCHIZOAFFECTIVE DISORDER BIPOLAR TYPE
     Dosage: 300 MG, QD
     Route: 048
     Dates: start: 2012
  2. MIRTAZAPINE [Concomitant]
     Dosage: 30 MG, QD AT NIGHT
     Route: 048
     Dates: start: 2013
  3. INTUNIV [Concomitant]
     Indication: IMPULSIVE BEHAVIOUR
     Dosage: 2 MG, QD
     Route: 048
     Dates: start: 2012

REACTIONS (1)
  - Mental disorder [Unknown]
